FAERS Safety Report 8878955 (Version 1)
Quarter: 2012Q4

REPORT INFORMATION
  Report Type: 
  Country: US (occurrence: US)
  Receive Date: 20121026
  Receipt Date: 20121026
  Transmission Date: 20130627
  Serious: Yes (Other)
  Sender: FDA-Public Use
  Company Number: US-ROCHE-1132552

PATIENT
  Sex: Female

DRUGS (2)
  1. RITUXAN [Suspect]
     Indication: THROMBOCYTOPENIA
     Dosage: 581
     Route: 065
     Dates: start: 20020201
  2. RITUXAN [Suspect]
     Indication: OFF LABEL USE

REACTIONS (6)
  - Thrombocytopenia [Unknown]
  - Therapeutic response decreased [Unknown]
  - Asthenia [Unknown]
  - Pyrexia [Unknown]
  - Lethargy [Unknown]
  - Confusional state [Unknown]
